FAERS Safety Report 7560555-5 (Version None)
Quarter: 2011Q2

REPORT INFORMATION
  Report Type: 
  Country: None (occurrence: None)
  Receive Date: 20110621
  Receipt Date: 20100923
  Transmission Date: 20111010
  Serious: No
  Sender: FDA-Public Use
  Company Number: US-ASTRAZENECA-2010SE44557

PATIENT
  Age: 37 Year
  Sex: Male

DRUGS (2)
  1. ENTOCORT EC [Suspect]
     Route: 048
     Dates: end: 20100701
  2. ENTOCORT EC [Suspect]
     Indication: COLITIS
     Route: 048
     Dates: start: 20100601

REACTIONS (3)
  - HYPERTRIGLYCERIDAEMIA [None]
  - TINNITUS [None]
  - DRUG INEFFECTIVE [None]
